FAERS Safety Report 10751992 (Version 5)
Quarter: 2015Q2

REPORT INFORMATION
  Report Type: Spontaneous
  Country: US (occurrence: US)
  Receive Date: 20150130
  Receipt Date: 20150420
  Transmission Date: 20150821
  Serious: Yes (Other)
  Sender: FDA-Public Use
  Company Number: US-009507513-1501USA012141

PATIENT
  Age: 28 Year
  Sex: Female
  Weight: 85.71 kg

DRUGS (1)
  1. NEXPLANON [Suspect]
     Active Substance: ETONOGESTREL
     Indication: CONTRACEPTION
     Dosage: UNK
     Route: 059
     Dates: start: 20140525

REACTIONS (4)
  - Vaginal haemorrhage [Recovered/Resolved]
  - Device kink [Recovered/Resolved]
  - Implant site pain [Unknown]
  - Implant site bruising [Unknown]

NARRATIVE: CASE EVENT DATE: 201411
